FAERS Safety Report 8489181-0 (Version None)
Quarter: 2012Q3

REPORT INFORMATION
  Report Type: 
  Country: None (occurrence: None)
  Receive Date: 20120705
  Receipt Date: 20110601
  Transmission Date: 20120928
  Serious: Yes (Disabling)
  Sender: FDA-Public Use
  Company Number: FR-JNJFOC-20110702908

PATIENT
  Sex: Female

DRUGS (2)
  1. ALL OTHER THERAPEUTIC PRODUCTS [Concomitant]
     Indication: PRODUCT USED FOR UNKNOWN INDICATION
     Route: 065
  2. TRAMADOL HCL [Suspect]
     Indication: PRODUCT USED FOR UNKNOWN INDICATION
     Route: 065

REACTIONS (7)
  - AMNESIA [None]
  - MOBILITY DECREASED [None]
  - VISUAL IMPAIRMENT [None]
  - DISTURBANCE IN ATTENTION [None]
  - PALPITATIONS [None]
  - INCORRECT DOSE ADMINISTERED [None]
  - FATIGUE [None]
